FAERS Safety Report 15171451 (Version 1)
Quarter: 2018Q3

REPORT INFORMATION
  Report Type: Spontaneous
  Country: IT (occurrence: IT)
  Receive Date: 20180720
  Receipt Date: 20180720
  Transmission Date: 20181010
  Serious: Yes (Hospitalization)
  Sender: FDA-Public Use
  Company Number: IT-PFIZER INC-2018290679

PATIENT
  Age: 66 Year
  Sex: Female
  Weight: 62 kg

DRUGS (4)
  1. PACLITAXEL. [Suspect]
     Active Substance: PACLITAXEL
     Indication: OVARIAN CANCER
     Dosage: 60 UG/M2, WEEKLY
     Route: 041
     Dates: start: 20180221
  2. CARBOPLATIN. [Concomitant]
     Active Substance: CARBOPLATIN
     Indication: OVARIAN CANCER
     Dosage: 120 MG, UNK
     Route: 041
     Dates: start: 20180221, end: 20180510
  3. DELTACORTENE [Concomitant]
     Active Substance: PREDNISONE
     Indication: INCORRECT DOSE ADMINISTERED
     Dosage: 50 MG, UNK
     Dates: start: 20180221, end: 20180410
  4. BEVACIZUMAB. [Concomitant]
     Active Substance: BEVACIZUMAB
     Indication: OVARIAN CANCER
     Dosage: 15 MG/KG, UNK
     Route: 041
     Dates: start: 20180411, end: 20180503

REACTIONS (3)
  - Interstitial lung disease [Not Recovered/Not Resolved]
  - Respiratory failure [Not Recovered/Not Resolved]
  - Hyperpyrexia [Not Recovered/Not Resolved]

NARRATIVE: CASE EVENT DATE: 20180517
